FAERS Safety Report 5379867-9 (Version None)
Quarter: 2007Q3

REPORT INFORMATION
  Report Type: 
  Country: None (occurrence: None)
  Receive Date: 20070703
  Receipt Date: 20070618
  Transmission Date: 20080115
  Serious: Yes (Other)
  Sender: FDA-Public Use
  Company Number: DSJ-2007-03493

PATIENT
  Age: 78 Year
  Sex: Male
  Weight: 68 kg

DRUGS (7)
  1. OLMETEC (OLMESARTAN MEDOXOMIL) (TABLET) (OLMESARTAN MEDOXOMIL) [Suspect]
     Indication: ESSENTIAL HYPERTENSION
     Dosage: 20 MG (20 MG,1 IN 1 D),PER ORAL
     Route: 048
     Dates: start: 20060915
  2. ADALAT CC [Suspect]
     Dosage: 10 MG (1 IN 1 D),PER ORAL
     Route: 048
  3. ALDACTAZIDE-A [Suspect]
     Dosage: 25 MG (1 IN 1 D),PER ORAL
     Route: 048
  4. PROPACALL (TICLOPIDINE HYDROCHLORIDE) (TICLOPIDINE HYDROCHLORIDE) [Suspect]
     Dosage: 100 MG (1 IN 1 D),PER ORAL
     Route: 048
  5. DEPAS (ETIZOLAM) (ETIZOLAM) [Concomitant]
  6. PAXIL [Concomitant]
  7. WYPAX (LORAZEPAM) (LORAZEPAM) [Concomitant]

REACTIONS (2)
  - DEHYDRATION [None]
  - RENAL IMPAIRMENT [None]
